FAERS Safety Report 21628670 (Version 1)
Quarter: 2022Q4

REPORT INFORMATION
  Report Type: Report from Study
  Country: US (occurrence: US)
  Receive Date: 20221122
  Receipt Date: 20221122
  Transmission Date: 20230113
  Serious: Yes (Other)
  Sender: FDA-Public Use
  Company Number: US-BIOVITRUM-2022US13488

PATIENT
  Age: 5 Year
  Sex: Female

DRUGS (1)
  1. KINERET [Suspect]
     Active Substance: ANAKINRA
     Indication: Juvenile idiopathic arthritis
     Dates: start: 20221025, end: 20221107

REACTIONS (5)
  - Drug reaction with eosinophilia and systemic symptoms [Unknown]
  - Laboratory test abnormal [Unknown]
  - Rash [Unknown]
  - Hypersensitivity [Unknown]
  - Off label use [Recovered/Resolved]

NARRATIVE: CASE EVENT DATE: 20221025
